FAERS Safety Report 4514700-6 (Version None)
Quarter: 2004Q4

REPORT INFORMATION
  Report Type: 
  Country: None (occurrence: None)
  Receive Date: 20041126
  Receipt Date: 20041115
  Transmission Date: 20050328
  Serious: Yes (Hospitalization)
  Sender: FDA-Public Use
  Company Number: 2004CG02291

PATIENT
  Age: 58 Year
  Sex: Female
  Weight: 88 kg

DRUGS (3)
  1. NEXIUM [Suspect]
     Indication: ABDOMINAL PAIN UPPER
     Dosage: 20 MG DAILY PO
     Route: 048
     Dates: start: 20040922, end: 20040928
  2. ALLOPURINOL [Suspect]
     Indication: HYPERURICAEMIA
     Dosage: 200 MG DAILY PO
     Route: 048
     Dates: start: 20040922, end: 20041005
  3. MEDIATOR [Suspect]
     Dosage: 1 DF DAILY PO
     Route: 048
     Dates: start: 20040901

REACTIONS (2)
  - PRURITUS [None]
  - URTICARIA PAPULAR [None]
